FAERS Safety Report 7202451-9 (Version None)
Quarter: 2010Q4

REPORT INFORMATION
  Report Type: 
  Country: None (occurrence: None)
  Receive Date: 20101229
  Receipt Date: 20101221
  Transmission Date: 20110411
  Serious: Yes (Other)
  Sender: FDA-Public Use
  Company Number: A0901801A

PATIENT
  Age: 59 Year
  Sex: Female

DRUGS (2)
  1. PROMACTA [Suspect]
     Indication: THROMBOCYTOPENIA
     Route: 048
     Dates: start: 20100519
  2. CORTICOSTEROIDS [Concomitant]
     Indication: IDIOPATHIC THROMBOCYTOPENIC PURPURA

REACTIONS (3)
  - ASPARTATE AMINOTRANSFERASE INCREASED [None]
  - BLOOD BILIRUBIN INCREASED [None]
  - HEPATOBILIARY DISEASE [None]
